FAERS Safety Report 7323559-3 (Version None)
Quarter: 2011Q1

REPORT INFORMATION
  Report Type: 
  Country: None (occurrence: None)
  Receive Date: 20110301
  Receipt Date: 20110216
  Transmission Date: 20110831
  Serious: Yes (Other)
  Sender: FDA-Public Use
  Company Number: FR-ELI_LILLY_AND_COMPANY-FR201102004551

PATIENT
  Age: 29 Year
  Sex: Male

DRUGS (3)
  1. TERCIAN [Concomitant]
  2. ZYPREXA [Suspect]
     Indication: SCHIZOPHRENIA
     Dosage: 30 MG, DAILY (1/D)
     Route: 048
  3. BENZODIAZEPINE DERIVATIVES [Concomitant]

REACTIONS (2)
  - OVERDOSE [None]
  - HYPONATRAEMIA [None]
